FAERS Safety Report 7514937-8 (Version None)
Quarter: 2011Q2

REPORT INFORMATION
  Report Type: 
  Country: None (occurrence: None)
  Receive Date: 20110520
  Receipt Date: 20090115
  Transmission Date: 20111010
  Serious: Yes (Hospitalization)
  Sender: FDA-Public Use
  Company Number: RTA29

PATIENT
  Sex: Female

DRUGS (2)
  1. REMODULIN [Suspect]
     Indication: PULMONARY ARTERIAL HYPERTENSION
     Dates: start: 20070712, end: 20090401
  2. REMODULIN [Suspect]
     Indication: PULMONARY HYPERTENSION
     Dates: start: 20070712, end: 20090401

REACTIONS (1)
  - INTRACARDIAC THROMBUS [None]
